FAERS Safety Report 9275745 (Version 1)
Quarter: 2013Q2

REPORT INFORMATION
  Report Type: Report from Study
  Country: DE (occurrence: DE)
  Receive Date: 20130507
  Receipt Date: 20130507
  Transmission Date: 20140414
  Serious: Yes (Hospitalization)
  Sender: FDA-Public Use
  Company Number: DE-ABBOTT-13P-062-1084406-00

PATIENT
  Age: 25 Year
  Sex: Male

DRUGS (2)
  1. HUMIRA [Suspect]
     Indication: ANKYLOSING SPONDYLITIS
     Route: 058
     Dates: start: 20090401, end: 201301
  2. HUMIRA [Suspect]
     Route: 058
     Dates: start: 201303

REACTIONS (2)
  - Synovial cyst [Recovered/Resolved]
  - Synovial cyst [Recovered/Resolved]
